FAERS Safety Report 6749823-4 (Version None)
Quarter: 2010Q2

REPORT INFORMATION
  Report Type: 
  Country: None (occurrence: None)
  Receive Date: 20100601
  Receipt Date: 20100521
  Transmission Date: 20101027
  Serious: Yes (Other)
  Sender: FDA-Public Use
  Company Number: US-MERCK-1005USA03161

PATIENT
  Age: 13 Year
  Sex: Female

DRUGS (4)
  1. SINGULAIR [Suspect]
     Indication: ASTHMA
     Route: 065
     Dates: start: 20030101, end: 20080101
  2. SINGULAIR [Suspect]
     Route: 065
     Dates: start: 20090101, end: 20100118
  3. SINGULAIR [Suspect]
     Indication: HYPERSENSITIVITY
     Route: 065
     Dates: start: 20030101, end: 20080101
  4. SINGULAIR [Suspect]
     Route: 065
     Dates: start: 20090101, end: 20100118

REACTIONS (15)
  - ADVERSE EVENT [None]
  - AGGRESSION [None]
  - ANXIETY DISORDER [None]
  - CATATONIA [None]
  - DEPRESSION [None]
  - EAR INFECTION [None]
  - HALLUCINATION [None]
  - INSOMNIA [None]
  - IRRITABILITY [None]
  - NIGHTMARE [None]
  - PANIC ATTACK [None]
  - SOMNOLENCE [None]
  - SUICIDE ATTEMPT [None]
  - TIC [None]
  - TREMOR [None]
